FAERS Safety Report 9587232 (Version 1)
Quarter: 2013Q4

REPORT INFORMATION
  Report Type: Spontaneous
  Country: IN (occurrence: IN)
  Receive Date: 20131003
  Receipt Date: 20131003
  Transmission Date: 20140711
  Serious: Yes (Other)
  Sender: FDA-Public Use
  Company Number: IN-WATSON-2013-16999

PATIENT
  Age: 52 Year
  Sex: Male

DRUGS (2)
  1. VENLAFAXINE (UNKNOWN) [Suspect]
     Indication: MAJOR DEPRESSION
     Dosage: 225 MG, DAILY
     Route: 065
  2. BUPROPION HYDROCHLORIDE (UNKNOWN) [Interacting]
     Indication: MAJOR DEPRESSION
     Dosage: UNK
     Route: 065

REACTIONS (6)
  - Suicidal ideation [Unknown]
  - Blood pressure increased [Unknown]
  - Anxiety [Unknown]
  - Agitation [Unknown]
  - Restlessness [Unknown]
  - Potentiating drug interaction [Unknown]
